FAERS Safety Report 8333594-4 (Version None)
Quarter: 2012Q2

REPORT INFORMATION
  Report Type: 
  Country: None (occurrence: None)
  Receive Date: 20120503
  Receipt Date: 20120427
  Transmission Date: 20120825
  Serious: Yes (Other)
  Sender: FDA-Public Use
  Company Number: PHHY2011JP18627

PATIENT
  Age: 10 Year
  Sex: Female
  Weight: 14 kg

DRUGS (8)
  1. LOSARTAN POTASSIUM [Concomitant]
     Indication: HYPERTENSION
     Dosage: 0.2 DF, UNK
     Route: 048
     Dates: start: 20051201
  2. SIMULECT [Suspect]
     Indication: RENAL TRANSPLANT
     Dosage: 10 MG, UNK
     Route: 042
     Dates: start: 20110302, end: 20110302
  3. MYCOPHENOLATE MOFETIL (CELLCEPT) [Concomitant]
     Indication: RENAL TRANSPLANT
     Dosage: 500 MG, UNK
     Route: 048
     Dates: start: 20110228
  4. NEORAL [Concomitant]
     Indication: RENAL TRANSPLANT
     Dosage: 100 MG, UNK
     Route: 048
     Dates: start: 20110305
  5. METHYLPREDNISOLONE [Concomitant]
  6. MEDROL [Concomitant]
     Indication: RENAL TRANSPLANT
     Dosage: 125 MG, UNK
     Route: 048
     Dates: start: 20110302
  7. PROGRAF [Concomitant]
     Indication: RENAL TRANSPLANT
     Dosage: 0.5 MG, UNK
     Route: 042
     Dates: start: 20110302, end: 20110304
  8. PROGRAF [Concomitant]
     Dosage: 3 MG, UNK
     Dates: start: 20110228, end: 20110301

REACTIONS (2)
  - TOXIC ENCEPHALOPATHY [None]
  - BLOOD PRESSURE DECREASED [None]
